FAERS Safety Report 7553830-1 (Version None)
Quarter: 2011Q2

REPORT INFORMATION
  Report Type: 
  Country: None (occurrence: None)
  Receive Date: 20110617
  Receipt Date: 20110608
  Transmission Date: 20111010
  Serious: Yes (Other)
  Sender: FDA-Public Use
  Company Number: US-JNJFOC-20110512746

PATIENT
  Sex: Male
  Weight: 86.18 kg

DRUGS (11)
  1. OXYCODONE HCL [Concomitant]
     Indication: ANALGESIC THERAPY
     Dosage: AS NEEDED
     Route: 048
     Dates: start: 20020101
  2. FENTANYL-100 [Concomitant]
     Indication: INTERVERTEBRAL DISC DEGENERATION
     Route: 062
     Dates: start: 20100101
  3. MORPHINE SULFATE [Concomitant]
     Indication: PAIN
     Route: 048
  4. DURAGESIC-100 [Suspect]
     Indication: INTERVERTEBRAL DISC DEGENERATION
     Route: 062
     Dates: start: 20010501, end: 20050101
  5. FENTANYL-100 [Suspect]
     Indication: INTERVERTEBRAL DISC DEGENERATION
     Route: 062
     Dates: start: 20050101, end: 20110607
  6. AMBIEN [Concomitant]
     Indication: SLEEP DISORDER
     Route: 048
  7. MELOXICAM [Concomitant]
     Indication: INFLAMMATION
     Dosage: AS NEEDED
     Route: 048
     Dates: start: 20020101
  8. FLURAZEPAM [Concomitant]
     Indication: SLEEP DISORDER
     Dosage: AT BED TIME
     Route: 048
     Dates: start: 20070101
  9. ASPIRIN [Concomitant]
     Indication: PLATELET TRANSFUSION
     Dosage: AS NEEDED
     Route: 048
     Dates: start: 19910101
  10. DURAGESIC-100 [Suspect]
     Route: 062
     Dates: start: 20110607
  11. DURAGESIC-100 [Suspect]
     Route: 062
     Dates: start: 20020101, end: 20110101

REACTIONS (5)
  - OVERDOSE [None]
  - ANXIETY [None]
  - DRUG INEFFECTIVE [None]
  - LYMPHOMA [None]
  - DRUG DOSE OMISSION [None]
